FAERS Safety Report 13652387 (Version 1)
Quarter: 2017Q2

REPORT INFORMATION
  Report Type: Spontaneous
  Country: US (occurrence: US)
  Receive Date: 20170614
  Receipt Date: 20170614
  Transmission Date: 20170830
  Serious: No
  Sender: FDA-Public Use
  Company Number: US-ROCHE-1331696

PATIENT
  Sex: Female

DRUGS (7)
  1. XELODA [Suspect]
     Active Substance: CAPECITABINE
     Indication: COLON CANCER
     Dosage: 7 DAYS ON, 7 OFF
     Route: 048
     Dates: start: 20131113
  2. XELODA [Suspect]
     Active Substance: CAPECITABINE
     Dosage: 7 DAYS ON, 7 OFF
     Route: 048
     Dates: start: 20131113
  3. ZOFRAN [Concomitant]
     Active Substance: ONDANSETRON HYDROCHLORIDE
  4. PRILOSEC [Concomitant]
     Active Substance: OMEPRAZOLE MAGNESIUM
  5. MORPHINE [Concomitant]
     Active Substance: MORPHINE
  6. LOPRESSOR [Concomitant]
     Active Substance: METOPROLOL TARTRATE
  7. MEGACE [Concomitant]
     Active Substance: MEGESTROL ACETATE

REACTIONS (2)
  - Abdominal pain upper [Unknown]
  - Diarrhoea [Unknown]
